FAERS Safety Report 6930425-1 (Version None)
Quarter: 2010Q3

REPORT INFORMATION
  Report Type: 
  Country: None (occurrence: None)
  Receive Date: 20100813
  Receipt Date: 20100802
  Transmission Date: 20110219
  Serious: Yes (Other)
  Sender: FDA-Public Use
  Company Number: TPG2010A00466

PATIENT
  Age: 70 Year
  Sex: Male

DRUGS (1)
  1. ACTOPLUS MET [Suspect]
     Indication: PRODUCT USED FOR UNKNOWN INDICATION
     Dosage: PER ORAL
     Route: 048

REACTIONS (3)
  - CARDIOMEGALY [None]
  - OEDEMA [None]
  - WEIGHT INCREASED [None]
